FAERS Safety Report 8386386-4 (Version None)
Quarter: 2012Q2

REPORT INFORMATION
  Report Type: 
  Country: None (occurrence: None)
  Receive Date: 20120525
  Receipt Date: 20120518
  Transmission Date: 20120825
  Serious: Yes (Other)
  Sender: FDA-Public Use
  Company Number: ZA-SANOFI-AVENTIS-2012SA035367

PATIENT
  Sex: Female

DRUGS (2)
  1. SOLOSTAR [Suspect]
     Indication: DEVICE THERAPY
  2. APIDRA SOLOSTAR [Suspect]
     Route: 065

REACTIONS (2)
  - PRODUCT QUALITY ISSUE [None]
  - DIABETIC KETOACIDOSIS [None]
